FAERS Safety Report 9200426 (Version 4)
Quarter: 2013Q4

REPORT INFORMATION
  Report Type: Report from Study
  Country: BR (occurrence: BR)
  Receive Date: 20130329
  Receipt Date: 20131024
  Transmission Date: 20140711
  Serious: Yes (Other)
  Sender: FDA-Public Use
  Company Number: BR-US-EMD SERONO, INC.-7201554

PATIENT
  Age: 49 Year
  Sex: Female

DRUGS (3)
  1. REBIF [Suspect]
     Indication: RELAPSING-REMITTING MULTIPLE SCLEROSIS
     Dates: start: 20060310, end: 20060410
  2. REBIF [Suspect]
     Dates: start: 20060410, end: 20120616
  3. REBIF [Suspect]
     Dates: start: 20121001

REACTIONS (6)
  - Invasive ductal breast carcinoma [Not Recovered/Not Resolved]
  - White blood cell count decreased [Unknown]
  - Twin pregnancy [Recovered/Resolved]
  - Maternal exposure during pregnancy [Recovered/Resolved]
  - Drug dose omission [Unknown]
  - Incorrect dose administered [Unknown]
